FAERS Safety Report 6394832-0 (Version None)
Quarter: 2009Q4

REPORT INFORMATION
  Report Type: 
  Country: None (occurrence: None)
  Receive Date: 20091009
  Receipt Date: 20090908
  Transmission Date: 20100525
  Serious: No
  Sender: FDA-Public Use
  Company Number: US-BAYER-200932973NA

PATIENT
  Sex: Female

DRUGS (2)
  1. MIRENA [Suspect]
     Indication: DRUG USE FOR UNKNOWN INDICATION
     Dosage: CONTINUOUSLY
     Route: 015
     Dates: start: 20090801, end: 20090801
  2. MIRENA [Suspect]
     Route: 015
     Dates: start: 20090801

REACTIONS (1)
  - MEDICAL DEVICE COMPLICATION [None]
